FAERS Safety Report 7507379-2 (Version None)
Quarter: 2011Q2

REPORT INFORMATION
  Report Type: 
  Country: None (occurrence: None)
  Receive Date: 20110526
  Receipt Date: 20110526
  Transmission Date: 20111010
  Serious: Yes (Hospitalization)
  Sender: FDA-Public Use
  Company Number: FR-ABBOTT-11P-056-0714946-00

PATIENT
  Age: 32 Year
  Sex: Female

DRUGS (2)
  1. HUMIRA [Suspect]
     Route: 058
     Dates: start: 20110516
  2. HUMIRA [Suspect]
     Indication: CROHN'S DISEASE
     Dosage: 160MG AS LOADING DOSE THEN 40MG
     Route: 058
     Dates: start: 20100101, end: 20101210

REACTIONS (2)
  - MYDRIASIS [None]
  - VERTIGO [None]
